FAERS Safety Report 15226360 (Version 1)
Quarter: 2018Q3

REPORT INFORMATION
  Report Type: Spontaneous
  Country: US (occurrence: US)
  Receive Date: 20180801
  Receipt Date: 20180801
  Transmission Date: 20181010
  Serious: No
  Sender: FDA-Public Use
  Company Number: US-DRREDDYS-USA/USA/17/0092982

PATIENT
  Sex: Female
  Weight: 58.06 kg

DRUGS (1)
  1. OMEPRAZOLE. [Suspect]
     Active Substance: OMEPRAZOLE
     Indication: OESOPHAGITIS
     Route: 048
     Dates: start: 20170710, end: 20170711

REACTIONS (4)
  - Tongue discomfort [Recovered/Resolved]
  - Product taste abnormal [Unknown]
  - Abdominal pain upper [Recovered/Resolved]
  - Oral discomfort [Recovered/Resolved]
